FAERS Safety Report 15900181 (Version 1)
Quarter: 2019Q1

REPORT INFORMATION
  Report Type: Spontaneous
  Country: US (occurrence: US)
  Receive Date: 20190201
  Receipt Date: 20190201
  Transmission Date: 20190417
  Serious: No
  Sender: FDA-Public Use
  Company Number: US-BAYER-2019-023250

PATIENT

DRUGS (3)
  1. PREGABALIN. [Concomitant]
     Active Substance: PREGABALIN
     Dosage: 2 MG, BID
     Route: 031
     Dates: start: 20180330
  2. PREGABALIN. [Concomitant]
     Active Substance: PREGABALIN
     Dosage: 3 DF, TID
     Route: 048
     Dates: start: 20181030
  3. ALEVE [Suspect]
     Active Substance: NAPROXEN SODIUM
     Dosage: UNK

REACTIONS (1)
  - Hypersensitivity [None]
